FAERS Safety Report 7879658-0 (Version None)
Quarter: 2011Q4

REPORT INFORMATION
  Report Type: 
  Country: None (occurrence: None)
  Receive Date: 20111101
  Receipt Date: 20111021
  Transmission Date: 20120403
  Serious: Yes (Hospitalization)
  Sender: FDA-Public Use
  Company Number: AU-GLAXOSMITHKLINE-B0747778A

PATIENT
  Sex: Female
  Weight: 64 kg

DRUGS (8)
  1. BOSENTAN [Concomitant]
     Dosage: 120MG TWICE PER DAY
     Route: 065
     Dates: start: 20100609
  2. SILDENAFIL [Concomitant]
     Dosage: 25MG TWICE PER DAY
     Route: 065
     Dates: start: 20100224
  3. ESCITALOPRAM [Concomitant]
     Route: 065
  4. LEVONORGESTREL [Concomitant]
     Route: 065
  5. WARFARIN [Concomitant]
     Route: 065
     Dates: start: 20090601
  6. FLOLAN [Suspect]
     Indication: PRODUCT USED FOR UNKNOWN INDICATION
     Route: 065
     Dates: start: 20090530
  7. NEXIUM [Concomitant]
     Route: 065
  8. FUROSEMIDE [Concomitant]
     Dosage: 40MG PER DAY
     Route: 065
     Dates: start: 20100601

REACTIONS (7)
  - VOMITING [None]
  - PERIPHERAL COLDNESS [None]
  - FEELING HOT [None]
  - VISION BLURRED [None]
  - PALLOR [None]
  - PARAESTHESIA [None]
  - CHEST PAIN [None]
